FAERS Safety Report 5253422-3 (Version None)
Quarter: 2007Q1

REPORT INFORMATION
  Report Type: 
  Country: None (occurrence: None)
  Receive Date: 20061201
  Receipt Date: 20060828
  Transmission Date: 20070707
  Serious: No
  Sender: FDA-Public Use
  Company Number: 2006PV020184

PATIENT
  Age: 58 Year
  Sex: Male
  Weight: 109.7705 kg

DRUGS (7)
  1. BYETTA [Suspect]
     Indication: DIABETES MELLITUS NON-INSULIN-DEPENDENT
     Dosage: 10 MCG; 5 MCG; BID; SC
     Route: 058
     Dates: start: 20050701, end: 20050801
  2. BYETTA [Suspect]
     Indication: DIABETES MELLITUS NON-INSULIN-DEPENDENT
     Dosage: 10 MCG; 5 MCG; BID; SC
     Route: 058
     Dates: start: 20050801
  3. AMARYL [Concomitant]
  4. AVANDIA [Concomitant]
  5. LIPITOR [Concomitant]
  6. LASIX [Concomitant]
  7. ASPIRIN [Concomitant]

REACTIONS (4)
  - BLOOD CREATININE INCREASED [None]
  - RENAL CYST [None]
  - RENAL MASS [None]
  - WEIGHT INCREASED [None]
